FAERS Safety Report 9669512 (Version 1)
Quarter: 2013Q4

REPORT INFORMATION
  Report Type: Spontaneous
  Country: US (occurrence: None)
  Receive Date: 20131104
  Receipt Date: 20131104
  Transmission Date: 20140711
  Serious: No
  Sender: FDA-Public Use
  Company Number: None

PATIENT
  Age: 31 Year
  Sex: Female
  Weight: 74.84 kg

DRUGS (1)
  1. AMITIZA [Suspect]
     Indication: IRRITABLE BOWEL SYNDROME
     Dosage: 1 PILL
     Route: 048
     Dates: start: 20111110, end: 20131031

REACTIONS (3)
  - Abortion spontaneous [None]
  - Maternal drugs affecting foetus [None]
  - Hormone level abnormal [None]
